FAERS Safety Report 11848867 (Version 3)
Quarter: 2016Q2

REPORT INFORMATION
  Report Type: Spontaneous
  Country: US (occurrence: US)
  Receive Date: 20151218
  Receipt Date: 20160519
  Transmission Date: 20160815
  Serious: Yes (Other)
  Sender: FDA-Public Use
  Company Number: US-ASTRAZENECA-2015SF24313

PATIENT
  Age: 62 Year
  Sex: Male
  Weight: 129.3 kg

DRUGS (20)
  1. PRILOSEC [Suspect]
     Active Substance: OMEPRAZOLE MAGNESIUM
     Indication: GASTROOESOPHAGEAL REFLUX DISEASE
     Route: 048
     Dates: start: 1995
  2. PRILOSEC [Suspect]
     Active Substance: OMEPRAZOLE MAGNESIUM
     Indication: GASTROOESOPHAGEAL REFLUX DISEASE
     Dosage: GENERIC
     Route: 048
  3. HTCZ [Concomitant]
  4. PRILOSEC [Suspect]
     Active Substance: OMEPRAZOLE MAGNESIUM
     Indication: GASTROOESOPHAGEAL REFLUX DISEASE
     Route: 048
  5. CHLORTHALID [Concomitant]
  6. PROAIR HFA [Concomitant]
     Active Substance: ALBUTEROL SULFATE
     Indication: WHEEZING
  7. PRILOSEC [Suspect]
     Active Substance: OMEPRAZOLE MAGNESIUM
     Indication: GASTROOESOPHAGEAL REFLUX DISEASE
     Route: 048
     Dates: start: 1990
  8. OXYGEN. [Concomitant]
     Active Substance: OXYGEN
  9. DEXILANT [Concomitant]
     Active Substance: DEXLANSOPRAZOLE
  10. PRILOSEC OTC [Suspect]
     Active Substance: OMEPRAZOLE MAGNESIUM
     Indication: GASTROOESOPHAGEAL REFLUX DISEASE
     Route: 048
  11. NEXIUM [Suspect]
     Active Substance: ESOMEPRAZOLE MAGNESIUM
     Indication: GASTROOESOPHAGEAL REFLUX DISEASE
     Route: 048
  12. VITAMIN D3 [Concomitant]
     Active Substance: CHOLECALCIFEROL
     Indication: SUPPLEMENTATION THERAPY
  13. PROAIR HFA [Concomitant]
     Active Substance: ALBUTEROL SULFATE
     Indication: ASTHMA
  14. VASEPA [Concomitant]
     Indication: BLOOD TRIGLYCERIDES ABNORMAL
  15. BENICAR [Concomitant]
     Active Substance: OLMESARTAN MEDOXOMIL
     Indication: BLOOD PRESSURE ABNORMAL
     Route: 048
  16. LESCOL XL [Concomitant]
     Active Substance: FLUVASTATIN SODIUM
     Indication: BLOOD TRIGLYCERIDES ABNORMAL
     Route: 048
  17. PROAIR HFA [Concomitant]
     Active Substance: ALBUTEROL SULFATE
     Indication: DYSPNOEA
  18. DIOVAN [Concomitant]
     Active Substance: VALSARTAN
  19. FISH OIL [Concomitant]
     Active Substance: FISH OIL
     Indication: ANTICOAGULANT THERAPY
     Route: 048
  20. VERELAN PM [Concomitant]
     Active Substance: VERAPAMIL HYDROCHLORIDE
     Indication: BLOOD PRESSURE ABNORMAL
     Route: 048

REACTIONS (21)
  - Dyspnoea [Unknown]
  - Hypoaesthesia [Unknown]
  - Malaise [Unknown]
  - Chest pain [Unknown]
  - Limb discomfort [Unknown]
  - Somnolence [Unknown]
  - Drug dose omission [Unknown]
  - Drug ineffective [Unknown]
  - Neck injury [Unknown]
  - Loss of consciousness [Unknown]
  - Skin discolouration [Unknown]
  - Diplopia [Unknown]
  - Dehydration [Unknown]
  - Drug hypersensitivity [Unknown]
  - Abdominal discomfort [Unknown]
  - Drug dispensing error [Unknown]
  - Migraine [Unknown]
  - Dizziness [Unknown]
  - Wheezing [Unknown]
  - Dyspnoea paroxysmal nocturnal [Unknown]
  - Joint injury [Unknown]

NARRATIVE: CASE EVENT DATE: 2012
